FAERS Safety Report 8304654-9 (Version None)
Quarter: 2012Q2

REPORT INFORMATION
  Report Type: 
  Country: None (occurrence: None)
  Receive Date: 20120423
  Receipt Date: 20120416
  Transmission Date: 20120825
  Serious: Yes (Other)
  Sender: FDA-Public Use
  Company Number: PHHY2012BR033414

PATIENT
  Sex: Female
  Weight: 63 kg

DRUGS (6)
  1. OSTEOBIFLEX ADVANCED [Concomitant]
     Indication: MUSCULOSKELETAL PAIN
     Dosage: 1 DF, DAILY
  2. PHYTOTHERAPEUTIC MEDICATION [Concomitant]
     Indication: MENOPAUSE
     Dosage: 1 DF, DAILY
  3. DIOVAN HCT [Suspect]
     Indication: HYPERTENSION
     Dosage: 1 DF (160/12.5MG) DAILY
     Route: 048
  4. ASPIRIN PREVENT [Concomitant]
     Indication: ANTICOAGULANT THERAPY
     Dosage: 1 DF, DAILY
  5. DIOVAN HCT [Suspect]
     Dosage: 0.5 DF (160/12.5MG) DAILY
     Route: 048
  6. ATORVASTATIN [Suspect]
     Dosage: 10 MG, QW4
     Route: 048

REACTIONS (2)
  - DIABETES MELLITUS [None]
  - WRONG TECHNIQUE IN DRUG USAGE PROCESS [None]
